FAERS Safety Report 24580063 (Version 1)
Quarter: 2024Q4

REPORT INFORMATION
  Report Type: Spontaneous
  Country: US (occurrence: None)
  Receive Date: 20241104
  Receipt Date: 20241104
  Transmission Date: 20250115
  Serious: Yes (Life-Threatening, Hospitalization)
  Sender: Public
  Company Number: None

PATIENT
  Age: 73 Year
  Sex: Male

DRUGS (7)
  1. TALTZ [Suspect]
     Active Substance: IXEKIZUMAB
     Indication: Ankylosing spondylitis
     Dosage: 80MG ONCE  MONTH SUBCUTNEOUS
     Route: 058
     Dates: start: 20230306
  2. ALFUZOSIN ER [Concomitant]
  3. ALLOPURINOL [Concomitant]
  4. MYRBETRIQ [Concomitant]
  5. PANTOPRAZOLE [Concomitant]
  6. POTASSIUM CIT [Concomitant]
  7. PREDNISOLONE AC [Concomitant]

REACTIONS (1)
  - Hospitalisation [None]

NARRATIVE: CASE EVENT DATE: 20240830
